FAERS Safety Report 5585735-X (Version None)
Quarter: 2008Q1

REPORT INFORMATION
  Report Type: 
  Country: None (occurrence: None)
  Receive Date: 20080104
  Receipt Date: 20071221
  Transmission Date: 20080703
  Serious: Yes (Death, Life-Threatening, Other)
  Sender: FDA-Public Use
  Company Number: 2007P1000729

PATIENT
  Age: 32 Year
  Sex: Female

DRUGS (8)
  1. BUSULFAN (BUSULFAN) [Suspect]
     Indication: STEM CELL TRANSPLANT
     Dosage: 19.2 ML; XL; IV, 25.6 ML; X1; IV, 6.4 ML; X1; IV
     Route: 042
     Dates: start: 20070526, end: 20070526
  2. BUSULFAN (BUSULFAN) [Suspect]
     Indication: STEM CELL TRANSPLANT
     Dosage: 19.2 ML; XL; IV, 25.6 ML; X1; IV, 6.4 ML; X1; IV
     Route: 042
     Dates: start: 20070527, end: 20070527
  3. BUSULFAN (BUSULFAN) [Suspect]
     Indication: STEM CELL TRANSPLANT
     Dosage: 19.2 ML; XL; IV, 25.6 ML; X1; IV, 6.4 ML; X1; IV
     Route: 042
     Dates: start: 20070528, end: 20070528
  4. MELPHALAN [Concomitant]
  5. FLUDARABINE PHOSPHATE [Concomitant]
  6. VALPROATE SODIUM [Concomitant]
  7. ATGAM [Concomitant]
  8. IMMUNOGLOBULIN (HORSE) [Concomitant]

REACTIONS (8)
  - ACUTE GRAFT VERSUS HOST DISEASE [None]
  - ACUTE GRAFT VERSUS HOST DISEASE IN INTESTINE [None]
  - BRAIN ABSCESS [None]
  - CYTOMEGALOVIRUS VIRAEMIA [None]
  - DIARRHOEA [None]
  - HAEMODYNAMIC INSTABILITY [None]
  - NO THERAPEUTIC RESPONSE [None]
  - STOMATITIS [None]
